FAERS Safety Report 12245473 (Version 2)
Quarter: 2016Q2

REPORT INFORMATION
  Report Type: Spontaneous
  Country: US (occurrence: US)
  Receive Date: 20160407
  Receipt Date: 20160413
  Transmission Date: 20160815
  Serious: Yes (Hospitalization)
  Sender: FDA-Public Use
  Company Number: US-UNITED THERAPEUTICS-UNT-2016-005340

PATIENT
  Age: 49 Year
  Sex: Female
  Weight: 74.83 kg

DRUGS (4)
  1. LETAIRIS [Concomitant]
     Active Substance: AMBRISENTAN
     Indication: PRODUCT USED FOR UNKNOWN INDICATION
  2. ADCIRCA [Concomitant]
     Active Substance: TADALAFIL
     Indication: PRODUCT USED FOR UNKNOWN INDICATION
  3. REMODULIN [Suspect]
     Active Substance: TREPROSTINIL
     Indication: PULMONARY HYPERTENSION
     Dosage: 0.008 ?G/KG, CONTINUING
     Route: 041
     Dates: start: 20160215
  4. COUMADIN [Concomitant]
     Active Substance: WARFARIN SODIUM
     Indication: PRODUCT USED FOR UNKNOWN INDICATION

REACTIONS (10)
  - Pruritus [Unknown]
  - Decreased appetite [Unknown]
  - Cellulitis [Unknown]
  - Erythema [Unknown]
  - Device dislocation [Unknown]
  - Headache [Unknown]
  - Therapy cessation [Unknown]
  - Rash [Unknown]
  - Face oedema [Unknown]
  - Injection site rash [Unknown]

NARRATIVE: CASE EVENT DATE: 201603
